FAERS Safety Report 7901133-5 (Version None)
Quarter: 2011Q4

REPORT INFORMATION
  Report Type: 
  Country: None (occurrence: None)
  Receive Date: 20111108
  Receipt Date: 20111031
  Transmission Date: 20120403
  Serious: Yes (Hospitalization)
  Sender: FDA-Public Use
  Company Number: JP-PFIZER INC-2011239032

PATIENT
  Age: 86 Year
  Sex: Male
  Weight: 54 kg

DRUGS (7)
  1. ZOSYN [Suspect]
     Indication: LUNG ABSCESS
     Dosage: 6.75 G
     Route: 041
     Dates: start: 20110831, end: 20110912
  2. LASIX [Concomitant]
     Indication: OEDEMA
     Dosage: 20 MG/DAY
     Route: 048
     Dates: start: 20110910, end: 20110915
  3. VALPROATE SODIUM [Concomitant]
     Indication: EPILEPSY
     Dosage: 800 MG, UNK
     Route: 048
     Dates: start: 20110620
  4. LENDORMIN [Concomitant]
     Indication: INSOMNIA
     Dosage: 0.25 MG/DAY
     Route: 048
     Dates: start: 20110705
  5. SLOW-K [Concomitant]
     Indication: HYPOKALAEMIA
     Dosage: 600 MG/DAY
     Route: 048
     Dates: start: 20110908
  6. CANDESARTAN CILEXETIL [Concomitant]
     Indication: HYPERTENSION
     Dosage: 2 MG/DAY
     Route: 048
     Dates: start: 20110830
  7. ALLOPURINOL [Concomitant]
     Indication: HYPERURICAEMIA
     Dosage: 50 MG/DAY
     Route: 048
     Dates: start: 20110831

REACTIONS (1)
  - RENAL FAILURE ACUTE [None]
